FAERS Safety Report 19245085 (Version 1)
Quarter: 2021Q2

REPORT INFORMATION
  Report Type: Report from Study
  Country: US (occurrence: US)
  Receive Date: 20210511
  Receipt Date: 20210511
  Transmission Date: 20210717
  Serious: Yes (Hospitalization, Other)
  Sender: FDA-Public Use
  Company Number: US-JNJFOC-20210417203

PATIENT
  Age: 55 Year
  Sex: Female
  Weight: 96.4 kg

DRUGS (2)
  1. SILDENAFIL CITRATE. [Concomitant]
     Active Substance: SILDENAFIL CITRATE
  2. EPOPROSTENOL SODIUM. [Suspect]
     Active Substance: EPOPROSTENOL SODIUM
     Indication: PULMONARY ARTERIAL HYPERTENSION
     Route: 042

REACTIONS (12)
  - Headache [Recovering/Resolving]
  - Arthralgia [Recovering/Resolving]
  - Pain in jaw [Not Recovered/Not Resolved]
  - Flushing [Recovering/Resolving]
  - Rash [Unknown]
  - Catheter site infection [Unknown]
  - Fungal infection [Unknown]
  - Nausea [Recovering/Resolving]
  - Constipation [Not Recovered/Not Resolved]
  - Diarrhoea [Not Recovered/Not Resolved]
  - Hypotension [Unknown]
  - Catheter site erythema [Unknown]

NARRATIVE: CASE EVENT DATE: 202104
